FAERS Safety Report 20507233 (Version 1)
Quarter: 2022Q1

REPORT INFORMATION
  Report Type: Spontaneous
  Country: US (occurrence: US)
  Receive Date: 20220223
  Receipt Date: 20220223
  Transmission Date: 20220423
  Serious: Yes (Life-Threatening, Hospitalization, Other)
  Sender: FDA-Public Use
  Company Number: US-BRACCO-2021US01892

PATIENT
  Age: 77 Year
  Sex: Female

DRUGS (5)
  1. ISOVUE 370 [Suspect]
     Active Substance: IOPAMIDOL
     Indication: Computerised tomogram abdomen
     Dosage: 150 ML, SINGLE
     Route: 042
     Dates: start: 20210420, end: 20210420
  2. GLIPIZIDE [Concomitant]
     Active Substance: GLIPIZIDE
     Dosage: UNK, QD
  3. CARVEDILOL [Concomitant]
     Active Substance: CARVEDILOL
     Dosage: UNK, QD
  4. FENOFIBRATE [Concomitant]
     Active Substance: FENOFIBRATE
     Dosage: UNK, QD
  5. METFORMIN [Concomitant]
     Active Substance: METFORMIN HYDROCHLORIDE
     Dosage: UNK, QD

REACTIONS (1)
  - Acute respiratory failure [Recovered/Resolved]

NARRATIVE: CASE EVENT DATE: 20210420
